FAERS Safety Report 7685732-4 (Version None)
Quarter: 2011Q3

REPORT INFORMATION
  Report Type: 
  Country: None (occurrence: None)
  Receive Date: 20110816
  Receipt Date: 20110808
  Transmission Date: 20111222
  Serious: Yes (Hospitalization)
  Sender: FDA-Public Use
  Company Number: US-BAXTER-2011BH024729

PATIENT
  Age: 82 Year
  Sex: Male
  Weight: 81 kg

DRUGS (2)
  1. ADVATE [Suspect]
     Indication: HAEMOPHILIA
     Route: 042
     Dates: start: 20060301
  2. RECOMBINATE [Suspect]
     Indication: HAEMOPHILIA
     Route: 042
     Dates: start: 20060301, end: 20060301

REACTIONS (3)
  - FACTOR VIII INHIBITION [None]
  - GASTROINTESTINAL HAEMORRHAGE [None]
  - URINARY BLADDER HAEMORRHAGE [None]
